FAERS Safety Report 8349706-2 (Version None)
Quarter: 2012Q2

REPORT INFORMATION
  Report Type: 
  Country: None (occurrence: None)
  Receive Date: 20120510
  Receipt Date: 20120504
  Transmission Date: 20120825
  Serious: Yes (Other)
  Sender: FDA-Public Use
  Company Number: PHHY2012NL029620

PATIENT
  Sex: Male
  Weight: 77 kg

DRUGS (11)
  1. ZITHROMAX [Concomitant]
     Indication: OSTEOPOROSIS
     Dosage: 500 MG, UNK
  2. TOBI [Suspect]
     Indication: RESPIRATORY TRACT INFECTION
     Dosage: 4 MG, BID
     Dates: start: 20120319, end: 20120405
  3. COTRIM [Concomitant]
  4. NASONEX [Concomitant]
  5. VITAMIN D [Concomitant]
  6. TACROLIMUS [Concomitant]
     Dosage: 3 MG, BID
  7. PREDNISOLONE [Concomitant]
     Dosage: 12 MG, UNK
     Route: 048
  8. MOVICOLON [Concomitant]
  9. OMEPRAZOLE [Concomitant]
     Dosage: 40 MG, UNK
  10. FOSAMAX [Concomitant]
     Dosage: 70 MG, UNK
     Route: 048
  11. CALCIUM [Concomitant]

REACTIONS (4)
  - DRUG LEVEL INCREASED [None]
  - BLOOD UREA INCREASED [None]
  - CREATININE URINE DECREASED [None]
  - RENAL IMPAIRMENT [None]
